FAERS Safety Report 21693298 (Version 1)
Quarter: 2022Q4

REPORT INFORMATION
  Report Type: Report from Study
  Country: FR (occurrence: FR)
  Receive Date: 20221207
  Receipt Date: 20221207
  Transmission Date: 20230113
  Serious: Yes (Other)
  Sender: FDA-Public Use
  Company Number: FR-MYLANLABS-2022M1135997

PATIENT
  Age: 80 Year
  Sex: Female

DRUGS (6)
  1. PREDNISONE [Suspect]
     Active Substance: PREDNISONE
     Indication: Giant cell arteritis
     Dosage: UNK (INITIAL DOSAGE NOT STATED)
     Route: 048
  2. PREDNISONE [Suspect]
     Active Substance: PREDNISONE
     Dosage: 7 MILLIGRAM, QD
     Route: 048
  3. PREDNISONE [Suspect]
     Active Substance: PREDNISONE
     Dosage: PREDNISONE DOSE WAS REDUCED TO 5 MG/DAY
     Route: 048
  4. DAPSONE [Concomitant]
     Active Substance: DAPSONE
     Indication: Giant cell arteritis
     Dosage: UNK
     Route: 065
  5. ANAKINRA [Concomitant]
     Active Substance: ANAKINRA
     Indication: Giant cell arteritis
     Dosage: 100 MILLIGRAM, QD (INFUSION)
     Route: 058
  6. ANAKINRA [Concomitant]
     Active Substance: ANAKINRA
     Dosage: 100 MILLIGRAM, BID  INFUSION
     Route: 058

REACTIONS (1)
  - Steroid dependence [Unknown]
